FAERS Safety Report 10564819 (Version 2)
Quarter: 2014Q4

REPORT INFORMATION
  Report Type: Spontaneous
  Country: JP (occurrence: JP)
  Receive Date: 20141105
  Receipt Date: 20141105
  Transmission Date: 20150529
  Serious: Yes (Other)
  Sender: FDA-Public Use
  Company Number: JP-ORION CORPORATION ORION PHARMA-ENT 2014-0173

PATIENT
  Sex: Female

DRUGS (2)
  1. NEODOPASTON [Suspect]
     Active Substance: CARBIDOPA\LEVODOPA
     Route: 048
  2. COMTAN [Suspect]
     Active Substance: ENTACAPONE
     Indication: PARKINSON^S DISEASE
     Route: 048

REACTIONS (3)
  - Drug level increased [Not Recovered/Not Resolved]
  - Catecholamines urine increased [Not Recovered/Not Resolved]
  - Cardiac failure [Unknown]
